FAERS Safety Report 21294928 (Version 2)
Quarter: 2022Q4

REPORT INFORMATION
  Report Type: Spontaneous
  Country: SE (occurrence: SE)
  Receive Date: 20220905
  Receipt Date: 20221107
  Transmission Date: 20230113
  Serious: Yes (Other)
  Sender: FDA-Public Use
  Company Number: None

PATIENT
  Sex: Female
  Weight: 93 kg

DRUGS (4)
  1. BRINTELLIX [Suspect]
     Active Substance: VORTIOXETINE HYDROBROMIDE
     Indication: Burnout syndrome
     Dosage: 10 MILLIGRAM, QD
     Route: 048
     Dates: start: 20210119, end: 20221005
  2. BRINTELLIX [Suspect]
     Active Substance: VORTIOXETINE HYDROBROMIDE
     Indication: Somatic symptom disorder
  3. BRINTELLIX [Suspect]
     Active Substance: VORTIOXETINE HYDROBROMIDE
     Indication: Depression
  4. BRINTELLIX [Suspect]
     Active Substance: VORTIOXETINE HYDROBROMIDE
     Indication: Anxiety

REACTIONS (18)
  - Electric shock sensation [Recovering/Resolving]
  - Somnolence [Recovering/Resolving]
  - Drug ineffective [Recovering/Resolving]
  - Nausea [Recovering/Resolving]
  - Weight increased [Recovering/Resolving]
  - Vomiting [Recovering/Resolving]
  - Derealisation [Recovering/Resolving]
  - Contusion [Recovering/Resolving]
  - Nightmare [Recovering/Resolving]
  - Blood pressure increased [Recovering/Resolving]
  - Hyperhidrosis [Recovering/Resolving]
  - Dizziness [Recovering/Resolving]
  - Headache [Recovering/Resolving]
  - Migraine with aura [Recovering/Resolving]
  - Mood swings [Recovering/Resolving]
  - Anxiety [Recovering/Resolving]
  - Intraocular pressure increased [Recovering/Resolving]
  - Fatigue [Recovering/Resolving]

NARRATIVE: CASE EVENT DATE: 20210119
